FAERS Safety Report 5366274-8 (Version None)
Quarter: 2007Q2

REPORT INFORMATION
  Report Type: 
  Country: None (occurrence: None)
  Receive Date: 20070619
  Receipt Date: 20070619
  Transmission Date: 20071010
  Serious: Yes (Other)
  Sender: FDA-Public Use
  Company Number: None

PATIENT
  Age: 37 Year
  Sex: Female
  Weight: 77.1115 kg

DRUGS (1)
  1. COLGATE TOTAL [Suspect]
     Indication: DENTAL DISORDER PROPHYLAXIS
     Dates: start: 20070522, end: 20070610

REACTIONS (2)
  - PRODUCTIVE COUGH [None]
  - THERAPEUTIC AGENT TOXICITY [None]
